FAERS Safety Report 5369557-0 (Version None)
Quarter: 2007Q2

REPORT INFORMATION
  Report Type: 
  Country: None (occurrence: None)
  Receive Date: 20070621
  Receipt Date: 20070606
  Transmission Date: 20071010
  Serious: Yes (Hospitalization)
  Sender: FDA-Public Use
  Company Number: 2007001038

PATIENT
  Age: 42 Year
  Sex: Female

DRUGS (5)
  1. ERLOTINIB (TABLET) (ERLOTINIB HCL) [Suspect]
     Indication: NON-SMALL CELL LUNG CANCER
     Dosage: 150 MG (QD), ORAL
     Route: 048
     Dates: start: 20070423, end: 20070521
  2. BEVACIZUMAB (INJECTION FOR INFUSION) [Suspect]
     Indication: NON-SMALL CELL LUNG CANCER
     Dosage: 10 M/KG (QOW), INTAVENOUS
     Route: 042
     Dates: start: 20070423, end: 20070521
  3. RADIATION THERAPY [Suspect]
     Indication: NON-SMALL CELL LUNG CANCER
     Dates: start: 20070423, end: 20070521
  4. PACLITAXEL [Suspect]
     Indication: NON-SMALL CELL LUNG CANCER
     Dosage: 45MG/M2 (Q WEEK), INTRAVENOUS
     Route: 042
     Dates: start: 20070423, end: 20070521
  5. BEVACIZUMAB (INJECTION FOR INFUSION) [Suspect]
     Indication: NON-SMALL CELL LUNG CANCER
     Dosage: 2 AUC (Q WEEK), INTRAVENOUS
     Route: 042
     Dates: start: 20040423, end: 20070521

REACTIONS (1)
  - OESOPHAGITIS [None]
